FAERS Safety Report 5113021-0 (Version None)
Quarter: 2006Q3

REPORT INFORMATION
  Report Type: 
  Country: None (occurrence: None)
  Receive Date: 20060921
  Receipt Date: 20060921
  Transmission Date: 20061208
  Serious: Yes (Other)
  Sender: FDA-Public Use
  Company Number: None

PATIENT
  Age: 30 Year
  Sex: Female
  Weight: 58.0604 kg

DRUGS (1)
  1. MIRENA [Suspect]
     Indication: CONTRACEPTION
     Dosage: 1   5 YEARS INTRA-UTERI
     Route: 015
     Dates: start: 20051103

REACTIONS (8)
  - ALOPECIA [None]
  - BACK PAIN [None]
  - FATIGUE [None]
  - HYPERTHYROIDISM [None]
  - LIBIDO DECREASED [None]
  - MEMORY IMPAIRMENT [None]
  - MENORRHAGIA [None]
  - MOOD ALTERED [None]
